FAERS Safety Report 20166448 (Version 3)
Quarter: 2022Q1

REPORT INFORMATION
  Report Type: Report from Study
  Country: CA (occurrence: None)
  Receive Date: 20211209
  Receipt Date: 20220202
  Transmission Date: 20220424
  Serious: Yes (Other)
  Sender: FDA-Public Use
  Company Number: CA-Merck Healthcare KGaA-9284904

PATIENT
  Age: 52 Year
  Sex: Female

DRUGS (2)
  1. MAVENCLAD [Suspect]
     Active Substance: CLADRIBINE
     Indication: Multiple sclerosis
     Dosage: YEAR ONE WEEK ONE THERAPY: ONE TABLET (10 MG) ON DAYS 1 TO 4
     Route: 048
     Dates: start: 20201205
  2. MAVENCLAD [Suspect]
     Active Substance: CLADRIBINE
     Dosage: YEAR ONE WEEK TWO THERAPY: ONE TABLET (10 MG) ON DAYS 1 TO 4
     Route: 048
     Dates: end: 20210105

REACTIONS (2)
  - Systemic lupus erythematosus [Not Recovered/Not Resolved]
  - Lymphadenopathy [Not Recovered/Not Resolved]

NARRATIVE: CASE EVENT DATE: 20210301
